FAERS Safety Report 6905993-6 (Version None)
Quarter: 2010Q3

REPORT INFORMATION
  Report Type: 
  Country: None (occurrence: None)
  Receive Date: 20100804
  Receipt Date: 20100722
  Transmission Date: 20110219
  Serious: Yes (Other)
  Sender: FDA-Public Use
  Company Number: PHHY2010US49152

PATIENT
  Age: 34 Year
  Sex: Male

DRUGS (3)
  1. MYCOPHENOLATE MOFETIL [Suspect]
     Indication: CORNEAL TRANSPLANT
  2. PREDNISONE [Concomitant]
     Indication: CORNEAL TRANSPLANT
  3. TACROLIMUS [Concomitant]
     Indication: CORNEAL TRANSPLANT

REACTIONS (7)
  - COMPLICATIONS OF TRANSPLANT SURGERY [None]
  - CORNEAL NEOVASCULARISATION [None]
  - CORNEAL SCAR [None]
  - CORNEAL TRANSPLANT [None]
  - EYE INFLAMMATION [None]
  - KERATOPLASTY [None]
  - OCULAR SURFACE DISEASE [None]
